FAERS Safety Report 12228435 (Version 1)
Quarter: 2016Q2

REPORT INFORMATION
  Report Type: Report from Study
  Country: IT (occurrence: IT)
  Receive Date: 20160401
  Receipt Date: 20160401
  Transmission Date: 20160815
  Serious: Yes (Other)
  Sender: FDA-Public Use
  Company Number: IT-BAXTER-2016BAX016459

PATIENT

DRUGS (2)
  1. TISSEEL [Suspect]
     Active Substance: FIBRINOGEN HUMAN\THROMBIN HUMAN
     Indication: GASTROINTESTINAL ANASTOMOTIC LEAK
     Route: 065
  2. TISSEEL [Suspect]
     Active Substance: FIBRINOGEN HUMAN\THROMBIN HUMAN
     Indication: POST PROCEDURAL COMPLICATION

REACTIONS (1)
  - Drug ineffective [Unknown]
